FAERS Safety Report 7032477-X (Version None)
Quarter: 2010Q4

REPORT INFORMATION
  Report Type: 
  Country: None (occurrence: None)
  Receive Date: 20101007
  Receipt Date: 20100419
  Transmission Date: 20110411
  Serious: Yes (Hospitalization, Other)
  Sender: FDA-Public Use
  Company Number: BE-BRISTOL-MYERS SQUIBB COMPANY-15075948

PATIENT
  Age: 63 Year
  Sex: Female
  Weight: 97 kg

DRUGS (3)
  1. CETUXIMAB [Suspect]
     Indication: NON-SMALL CELL LUNG CANCER
     Dosage: 5 MG/ML;RECENT INF:14APR2010
     Route: 042
     Dates: start: 20100310
  2. CISPLATIN [Suspect]
     Indication: NON-SMALL CELL LUNG CANCER
     Dosage: RECENT INF:31MAR2010 ON DAY 1 OF 21 DAY CYCLE
     Route: 042
     Dates: start: 20100310
  3. GEMCITABINE [Suspect]
     Indication: NON-SMALL CELL LUNG CANCER
     Dosage: RECENT INF:7APR2010 ON DAY 1,8 OF 21 DAY CYCLE
     Route: 042
     Dates: start: 20100310

REACTIONS (1)
  - PYELONEPHRITIS [None]
